FAERS Safety Report 18333239 (Version 1)
Quarter: 2020Q4

REPORT INFORMATION
  Report Type: Spontaneous
  Country: DE (occurrence: DE)
  Receive Date: 20201001
  Receipt Date: 20201001
  Transmission Date: 20210113
  Serious: Yes (Hospitalization)
  Sender: FDA-Public Use
  Company Number: DE-TEVA-2020-DE-1832537

PATIENT
  Age: 85 Year
  Sex: Female

DRUGS (12)
  1. PREDNISOLON [Concomitant]
     Active Substance: PREDNISOLONE
     Dosage: 2 DOSAGE FORMS DAILY; 5 MG, 2-0-0-0
  2. SITAGLIPTIN [Concomitant]
     Active Substance: SITAGLIPTIN
     Dosage: 25 MILLIGRAM DAILY; 1-0-0-0
  3. HUMALOG MIX [Concomitant]
     Active Substance: INSULIN LISPRO
     Dosage: NK IE, 16-0-8-0
  4. FENTANYL. [Concomitant]
     Active Substance: FENTANYL
     Dosage: 25 UG / H, NEXT BILL 22-JUL-2020
  5. KALINOR-RETARD P 600MG [Concomitant]
     Dosage: 1200 MILLIGRAM DAILY; 1-0-1-0
  6. RAMIPRIL. [Concomitant]
     Active Substance: RAMIPRIL
     Dosage: 1.25 MILLIGRAM DAILY; 1-0-0-0
  7. MIRTAZAPIN [Concomitant]
     Active Substance: MIRTAZAPINE
     Dosage: 7.5 MILLIGRAM DAILY; 0-0-0-1
  8. METOPROLOL. [Suspect]
     Active Substance: METOPROLOL
     Dosage: .5 DOSAGE FORMS DAILY; 47.5MG, 0.5-0-0-0
  9. COLECALCIFEROL (VITAMIN D) [Concomitant]
     Dosage: 20,000 IU / WEEK, WEDNESDAYS
  10. APIXABAN [Concomitant]
     Active Substance: APIXABAN
     Dosage: 5 MILLIGRAM DAILY; 1-0-1-0
  11. PANTOPRAZOL [Concomitant]
     Active Substance: PANTOPRAZOLE SODIUM
     Dosage: 20 MILLIGRAM DAILY; 1-0-0-0
  12. TORASEMID [Concomitant]
     Active Substance: TORSEMIDE
     Dosage: 20 MILLIGRAM DAILY; 1-0-0-0

REACTIONS (7)
  - General physical health deterioration [Unknown]
  - Weight increased [Unknown]
  - Oedema peripheral [Unknown]
  - Dyspnoea [Unknown]
  - Fatigue [Unknown]
  - Loss of consciousness [Unknown]
  - Musculoskeletal pain [Unknown]

NARRATIVE: CASE EVENT DATE: 202007
